APPROVED DRUG PRODUCT: PERPHENAZINE
Active Ingredient: PERPHENAZINE
Strength: 8MG
Dosage Form/Route: TABLET;ORAL
Application: A207582 | Product #003 | TE Code: AB
Applicant: WATSON LABORATORIES INC
Approved: Oct 17, 2016 | RLD: No | RS: No | Type: RX